FAERS Safety Report 24980156 (Version 1)
Quarter: 2025Q1

REPORT INFORMATION
  Report Type: Spontaneous
  Country: US (occurrence: None)
  Receive Date: 20250214
  Receipt Date: 20250214
  Transmission Date: 20250409
  Serious: Yes (Life-Threatening)
  Sender: FDA-CTU
  Company Number: None

PATIENT
  Age: 85 Year
  Sex: Female
  Weight: 87.1 kg

DRUGS (1)
  1. CEFTRIAXONE [Suspect]
     Active Substance: CEFTRIAXONE
     Indication: Urinary tract infection
     Route: 042
     Dates: start: 20250213, end: 20250213

REACTIONS (4)
  - Anaphylactic reaction [None]
  - Cardiac arrest [None]
  - Pulse absent [None]
  - Infusion related reaction [None]

NARRATIVE: CASE EVENT DATE: 20250213
